FAERS Safety Report 18853605 (Version 1)
Quarter: 2021Q1

REPORT INFORMATION
  Report Type: Spontaneous
  Country: JP (occurrence: JP)
  Receive Date: 20210205
  Receipt Date: 20210205
  Transmission Date: 20210420
  Serious: Yes (Other)
  Sender: FDA-Public Use
  Company Number: JP-PFIZER INC-2021082614

PATIENT

DRUGS (1)
  1. RHEUMATREX [Suspect]
     Active Substance: METHOTREXATE SODIUM
     Indication: RHEUMATOID ARTHRITIS
     Dosage: 12 MG, WEEKLY (6MG ON EVERY WEDNESDAY AND 6MG ON EVERY SATURDAY)
     Route: 048
     Dates: start: 2006

REACTIONS (2)
  - Colon cancer [Unknown]
  - Inappropriate schedule of product administration [Unknown]
